FAERS Safety Report 5493148-4 (Version None)
Quarter: 2007Q4

REPORT INFORMATION
  Report Type: 
  Country: None (occurrence: None)
  Receive Date: 20071019
  Receipt Date: 20071011
  Transmission Date: 20080405
  Serious: Yes (Death, Hospitalization)
  Sender: FDA-Public Use
  Company Number: 2007JP004733

PATIENT
  Age: 42 Year
  Sex: Female

DRUGS (2)
  1. TACROLIMUS [Suspect]
     Indication: STEM CELL TRANSPLANT
     Dosage: IV NOS
     Route: 042
  2. CYCLOSPORINE          FORMULATION UNKNOWN [Concomitant]

REACTIONS (10)
  - ACINETOBACTER INFECTION [None]
  - ACUTE GRAFT VERSUS HOST DISEASE IN SKIN [None]
  - ENTEROCOCCAL INFECTION [None]
  - GENERAL PHYSICAL HEALTH DETERIORATION [None]
  - PNEUMONIA KLEBSIELLA [None]
  - PROTEUS INFECTION [None]
  - PSEUDOMONAS INFECTION [None]
  - SEPSIS [None]
  - STENOTROPHOMONAS INFECTION [None]
  - SYSTEMIC MYCOSIS [None]
